FAERS Safety Report 7865783-7 (Version None)
Quarter: 2011Q4

REPORT INFORMATION
  Report Type: 
  Country: None (occurrence: None)
  Receive Date: 20111028
  Receipt Date: 20110222
  Transmission Date: 20120403
  Serious: No
  Sender: FDA-Public Use
  Company Number: US-GLAXOSMITHKLINE-A0914896A

PATIENT
  Age: 80 Year
  Sex: Female

DRUGS (5)
  1. FUROSEMIDE [Concomitant]
  2. BENAZEPRIL HYDROCHLORIDE [Concomitant]
  3. HYDROXYZINE [Concomitant]
  4. CITROSAN [Concomitant]
  5. ADVAIR DISKUS 100/50 [Suspect]
     Indication: CHRONIC OBSTRUCTIVE PULMONARY DISEASE
     Dosage: 1PUFF PER DAY
     Route: 055
     Dates: start: 20110201, end: 20110220

REACTIONS (6)
  - EYE PRURITUS [None]
  - COUGH [None]
  - EYELID MARGIN CRUSTING [None]
  - OCULAR HYPERAEMIA [None]
  - INCREASED BRONCHIAL SECRETION [None]
  - RHINORRHOEA [None]
